FAERS Safety Report 7943762-9 (Version None)
Quarter: 2011Q4

REPORT INFORMATION
  Report Type: 
  Country: None (occurrence: None)
  Receive Date: 20111128
  Receipt Date: 20111122
  Transmission Date: 20120403
  Serious: Yes (Hospitalization)
  Sender: FDA-Public Use
  Company Number: PT-B.I. PHARMACEUTICALS,INC./RIDGEFIELD-2011-EU-00641PO

PATIENT
  Sex: Female

DRUGS (3)
  1. WARFARIN SODIUM [Suspect]
  2. SOTALOL HCL [Concomitant]
  3. PRADAXA [Suspect]

REACTIONS (2)
  - MEDICATION ERROR [None]
  - RECTAL HAEMORRHAGE [None]
